FAERS Safety Report 21406017 (Version 1)
Quarter: 2022Q4

REPORT INFORMATION
  Report Type: Spontaneous
  Country: GB (occurrence: GB)
  Receive Date: 20221004
  Receipt Date: 20221004
  Transmission Date: 20230112
  Serious: Yes (Life-Threatening, Hospitalization, Disabling)
  Sender: FDA-Public Use
  Company Number: None

PATIENT
  Age: 44 Year
  Weight: 76.2 kg

DRUGS (7)
  1. AMLODIPINE [Suspect]
     Active Substance: AMLODIPINE BESYLATE
     Indication: Hypertension
     Dates: start: 2020
  2. FLUOXETINE [Suspect]
     Active Substance: FLUOXETINE HYDROCHLORIDE
     Indication: Product used for unknown indication
     Dates: start: 2017, end: 2020
  3. BISOPROLOL [Suspect]
     Active Substance: BISOPROLOL
     Indication: Hypertension
     Dates: start: 2018
  4. BISOPROLOL [Suspect]
     Active Substance: BISOPROLOL
     Indication: Hypertension
  5. AMITRIPTYLINE [Suspect]
     Active Substance: AMITRIPTYLINE
     Indication: Product used for unknown indication
     Dates: start: 2017, end: 2020
  6. RAMIPRIL [Suspect]
     Active Substance: RAMIPRIL
     Indication: Hypertension
     Route: 048
     Dates: start: 2018, end: 20210211
  7. OMEPRAZOLE [Concomitant]
     Active Substance: OMEPRAZOLE
     Indication: Gastric ulcer

REACTIONS (31)
  - Trismus [Recovered/Resolved]
  - Transient ischaemic attack [Unknown]
  - Facial paralysis [Unknown]
  - Brain injury [Unknown]
  - Mental impairment [Recovering/Resolving]
  - Adrenal adenoma [Unknown]
  - Haemoptysis [Recovering/Resolving]
  - Feeling cold [Unknown]
  - Drug interaction [Unknown]
  - Suicidal behaviour [Unknown]
  - Intelligence test abnormal [Recovering/Resolving]
  - Peripheral coldness [Unknown]
  - Brain oedema [Unknown]
  - Axillary pain [Recovered/Resolved]
  - Speech disorder [Unknown]
  - Fluid retention [Recovering/Resolving]
  - Hypertension [Unknown]
  - Muscle twitching [Unknown]
  - Blood pressure decreased [Recovered/Resolved]
  - Chest pain [Unknown]
  - Chest discomfort [Unknown]
  - Pulmonary oedema [Unknown]
  - Anxiety [Unknown]
  - Depression [Unknown]
  - Nausea [Unknown]
  - Vomiting [Unknown]
  - Confusional state [Unknown]
  - Dyspnoea [Recovering/Resolving]
  - Syncope [Unknown]
  - Generalised oedema [Unknown]
  - Drug ineffective [Unknown]

NARRATIVE: CASE EVENT DATE: 20190101
